FAERS Safety Report 18819457 (Version 1)
Quarter: 2021Q1

REPORT INFORMATION
  Report Type: Spontaneous
  Country: IN (occurrence: IN)
  Receive Date: 20210201
  Receipt Date: 20210201
  Transmission Date: 20210419
  Serious: Yes (Other)
  Sender: FDA-Public Use
  Company Number: IN-PFIZER INC-2020284130

PATIENT
  Age: 50 Year
  Sex: Female

DRUGS (3)
  1. ZOLDONAT [Concomitant]
     Dosage: 4 MG, MONTHLY
     Route: 042
  2. FEMARA [Concomitant]
     Active Substance: LETROZOLE
     Dosage: 1 DF, DAILY
  3. PALBACE [Suspect]
     Active Substance: PALBOCICLIB
     Indication: BREAST CANCER METASTATIC
     Dosage: 125 MG, DAILY (X 21 DAYS )
     Route: 048
     Dates: start: 20200515

REACTIONS (4)
  - Haemoglobin decreased [Unknown]
  - Cholelithiasis [Unknown]
  - Alveolar lung disease [Unknown]
  - White blood cell count decreased [Unknown]

NARRATIVE: CASE EVENT DATE: 2020
